FAERS Safety Report 5983086-2 (Version None)
Quarter: 2008Q4

REPORT INFORMATION
  Report Type: 
  Country: None (occurrence: None)
  Receive Date: 20081208
  Receipt Date: 20081202
  Transmission Date: 20090506
  Serious: Yes (Other)
  Sender: FDA-Public Use
  Company Number: DE-AVENTIS-200813155DE

PATIENT
  Age: 13 Year
  Sex: Female

DRUGS (1)
  1. CLEXANE [Suspect]
     Dosage: DOSE: NOT REPORTED

REACTIONS (1)
  - CIRCULATORY COLLAPSE [None]
